FAERS Safety Report 7208954-5 (Version None)
Quarter: 2010Q4

REPORT INFORMATION
  Report Type: 
  Country: None (occurrence: None)
  Receive Date: 20101222
  Receipt Date: 20101207
  Transmission Date: 20110411
  Serious: Yes (Other)
  Sender: FDA-Public Use
  Company Number: 2010SP063814

PATIENT
  Age: 34 Year
  Sex: Male
  Weight: 98 kg

DRUGS (4)
  1. ROCURONIUM BROMIDE [Suspect]
     Indication: NEUROMUSCULAR BLOCKADE
     Dosage: 50 MG;
     Dates: start: 20101207
  2. NEOSTIGMINE (NEOSTIGMINE) [Suspect]
     Indication: NEUROMUSCULAR BLOCKADE REVERSAL
     Dosage: 1.5 MG
     Dates: start: 20101207
  3. ATROPINE SULFATE [Suspect]
     Indication: PRODUCT USED FOR UNKNOWN INDICATION
     Dosage: 0.5 MG
     Dates: start: 20101207
  4. LYSTHENON (SUXAMETHONIUM CHLROIDE /00057702/) [Suspect]
     Indication: NEUROMUSCULAR BLOCKADE REVERSAL
     Dosage: 100 MG
     Dates: start: 20101207

REACTIONS (1)
  - LARYNGOSPASM [None]
